FAERS Safety Report 21697968 (Version 1)
Quarter: 2022Q4

REPORT INFORMATION
  Report Type: Spontaneous
  Country: US (occurrence: US)
  Receive Date: 20221208
  Receipt Date: 20221208
  Transmission Date: 20230113
  Serious: Yes (Other)
  Sender: FDA-Public Use
  Company Number: US-CADILA HEALTHCARE LIMITED-US-ZYDUS-085503

PATIENT

DRUGS (18)
  1. NYSTATIN [Suspect]
     Active Substance: NYSTATIN
     Indication: Sepsis
     Dosage: UNK
     Route: 065
  2. NYSTATIN [Suspect]
     Active Substance: NYSTATIN
     Indication: Osteomyelitis
  3. PIPERACILLIN AND TAZOBACTAM [Suspect]
     Active Substance: PIPERACILLIN SODIUM\TAZOBACTAM SODIUM
     Indication: Osteomyelitis
     Dosage: UNK
     Route: 065
  4. PIPERACILLIN AND TAZOBACTAM [Suspect]
     Active Substance: PIPERACILLIN SODIUM\TAZOBACTAM SODIUM
     Indication: Sepsis
  5. ERTAPENEM [Suspect]
     Active Substance: ERTAPENEM
     Indication: Sepsis
     Dosage: UNK
     Route: 065
  6. ERTAPENEM [Suspect]
     Active Substance: ERTAPENEM
     Indication: Osteomyelitis
  7. AMPICILLIN SODIUM\SULBACTAM SODIUM [Suspect]
     Active Substance: AMPICILLIN SODIUM\SULBACTAM SODIUM
     Indication: Osteomyelitis
     Dosage: UNK
     Route: 065
  8. AMPICILLIN SODIUM\SULBACTAM SODIUM [Suspect]
     Active Substance: AMPICILLIN SODIUM\SULBACTAM SODIUM
     Indication: Sepsis
  9. MICAFUNGIN [Suspect]
     Active Substance: MICAFUNGIN
     Indication: Sepsis
     Dosage: UNK
     Route: 065
  10. MICAFUNGIN [Suspect]
     Active Substance: MICAFUNGIN
     Indication: Osteomyelitis
  11. DAPTOMYCIN [Suspect]
     Active Substance: DAPTOMYCIN
     Indication: Osteomyelitis
     Dosage: UNK
     Route: 065
  12. DAPTOMYCIN [Suspect]
     Active Substance: DAPTOMYCIN
     Indication: Sepsis
  13. MEROPENEM [Suspect]
     Active Substance: MEROPENEM
     Indication: Osteomyelitis
     Dosage: UNK
     Route: 065
  14. MEROPENEM [Suspect]
     Active Substance: MEROPENEM
     Indication: Sepsis
  15. AMPHOTERICIN B [Suspect]
     Active Substance: AMPHOTERICIN B
     Indication: Osteomyelitis
     Dosage: UNK
     Route: 065
  16. AMPHOTERICIN B [Suspect]
     Active Substance: AMPHOTERICIN B
     Indication: Sepsis
  17. POSACONAZOLE [Concomitant]
     Active Substance: POSACONAZOLE
     Indication: Antifungal treatment
     Dosage: UNK
     Route: 065
  18. FLUCYTOSINE [Concomitant]
     Active Substance: FLUCYTOSINE
     Indication: Antifungal treatment
     Dosage: UNK
     Route: 065

REACTIONS (2)
  - Serum sickness [Unknown]
  - Drug ineffective [Unknown]
